FAERS Safety Report 8320228-8 (Version None)
Quarter: 2012Q2

REPORT INFORMATION
  Report Type: 
  Country: None (occurrence: None)
  Receive Date: 20120430
  Receipt Date: 20120425
  Transmission Date: 20120825
  Serious: No
  Sender: FDA-Public Use
  Company Number: US-BIOGENIDEC-2012BI007834

PATIENT
  Age: 53 Year
  Sex: Female

DRUGS (1)
  1. AVONEX [Suspect]
     Indication: MULTIPLE SCLEROSIS
     Route: 030
     Dates: start: 20120227, end: 20120425

REACTIONS (4)
  - MUSCULAR WEAKNESS [None]
  - LOSS OF CONTROL OF LEGS [None]
  - ASTHENIA [None]
  - NAUSEA [None]
